FAERS Safety Report 4884983-1 (Version None)
Quarter: 2006Q1

REPORT INFORMATION
  Report Type: 
  Country: None (occurrence: None)
  Receive Date: 20060119
  Receipt Date: 20060109
  Transmission Date: 20060701
  Serious: Yes (Death)
  Sender: FDA-Public Use
  Company Number: FR-JNJFOC-20060101669

PATIENT
  Sex: Female

DRUGS (5)
  1. SUFENTA [Suspect]
     Indication: GENERAL ANAESTHESIA
     Route: 064
  2. TOPALGIC [Suspect]
     Indication: DRUG USE FOR UNKNOWN INDICATION
     Route: 064
  3. THIOPENTAL SODIUM [Suspect]
     Indication: DRUG USE FOR UNKNOWN INDICATION
     Route: 064
  4. NIMBEX [Suspect]
     Indication: DRUG USE FOR UNKNOWN INDICATION
     Route: 064
  5. PERFALGAN [Suspect]
     Indication: DRUG USE FOR UNKNOWN INDICATION
     Route: 064

REACTIONS (1)
  - MULTIPLE CONGENITAL ABNORMALITIES [None]
